FAERS Safety Report 4556062-4 (Version None)
Quarter: 2005Q1

REPORT INFORMATION
  Report Type: 
  Country: None (occurrence: None)
  Receive Date: 20050119
  Receipt Date: 20050113
  Transmission Date: 20050727
  Serious: Yes (Other)
  Sender: FDA-Public Use
  Company Number: JP-GLAXOSMITHKLINE-B0364563A

PATIENT
  Sex: Male

DRUGS (2)
  1. ZOVIRAX [Suspect]
     Indication: HERPES ZOSTER
     Dosage: 800MG THREE TIMES PER DAY
     Route: 048
     Dates: start: 20050101
  2. THEOPHYLLINE [Concomitant]
     Route: 048

REACTIONS (1)
  - RESPIRATORY DEPRESSION [None]
